FAERS Safety Report 6385945-8 (Version None)
Quarter: 2009Q4

REPORT INFORMATION
  Report Type: 
  Country: None (occurrence: None)
  Receive Date: 20091002
  Receipt Date: 20090123
  Transmission Date: 20100525
  Serious: No
  Sender: FDA-Public Use
  Company Number: US-ASTRAZENECA-2009UW02141

PATIENT
  Age: 62 Year
  Sex: Female

DRUGS (2)
  1. ARIMIDEX [Suspect]
     Indication: BREAST CANCER FEMALE
     Route: 048
     Dates: start: 20090101, end: 20090114
  2. GLYBURIDE [Concomitant]
     Indication: DIABETES MELLITUS

REACTIONS (4)
  - FLUID RETENTION [None]
  - HEADACHE [None]
  - RASH [None]
  - WEIGHT INCREASED [None]
